FAERS Safety Report 7821953-5 (Version None)
Quarter: 2011Q4

REPORT INFORMATION
  Report Type: 
  Country: None (occurrence: None)
  Receive Date: 20111018
  Receipt Date: 20110119
  Transmission Date: 20120403
  Serious: No
  Sender: FDA-Public Use
  Company Number: US-ASTRAZENECA-2011SE03479

PATIENT
  Sex: Female

DRUGS (2)
  1. SYMBICORT [Suspect]
     Indication: COUGH
     Dosage: 320 MCG BID
     Route: 055
     Dates: start: 20110103
  2. SYMBICORT [Suspect]
     Indication: WHEEZING
     Dosage: 320 MCG BID
     Route: 055
     Dates: start: 20110103

REACTIONS (3)
  - COUGH [None]
  - WHEEZING [None]
  - DRUG DOSE OMISSION [None]
